FAERS Safety Report 7464528-2 (Version None)
Quarter: 2011Q2

REPORT INFORMATION
  Report Type: 
  Country: None (occurrence: None)
  Receive Date: 20110509
  Receipt Date: 20110426
  Transmission Date: 20111010
  Serious: Yes (Hospitalization)
  Sender: FDA-Public Use
  Company Number: US-ELI_LILLY_AND_COMPANY-US201104007796

PATIENT
  Age: 80 Year
  Sex: Female

DRUGS (2)
  1. HUMALOG MIX 50/50 [Suspect]
     Indication: TYPE 2 DIABETES MELLITUS
     Dosage: UNK, PRN
     Route: 065
  2. HUMALOG MIX 50/50 [Suspect]
     Dosage: UNK, PRN
     Route: 065

REACTIONS (8)
  - GASTROINTESTINAL ULCER [None]
  - GOUT [None]
  - CARDIAC DISORDER [None]
  - RECTAL HAEMORRHAGE [None]
  - BLOOD GLUCOSE INCREASED [None]
  - HOSPITALISATION [None]
  - MEMORY IMPAIRMENT [None]
  - PAIN IN EXTREMITY [None]
